FAERS Safety Report 6093403-3 (Version None)
Quarter: 2009Q1

REPORT INFORMATION
  Report Type: 
  Country: None (occurrence: None)
  Receive Date: 20090226
  Receipt Date: 20090216
  Transmission Date: 20090719
  Serious: Yes (Hospitalization)
  Sender: FDA-Public Use
  Company Number: US-BIOGENIDEC-2008BI034325

PATIENT
  Age: 67 Year
  Sex: Male

DRUGS (2)
  1. AVONEX [Suspect]
     Indication: MULTIPLE SCLEROSIS
     Route: 030
     Dates: start: 20030327
  2. AVONEX [Suspect]
     Route: 030
     Dates: start: 20050101, end: 20080101

REACTIONS (4)
  - ANIMAL BITE [None]
  - CHOLECYSTITIS [None]
  - SEPSIS [None]
  - URINARY TRACT INFECTION [None]
